FAERS Safety Report 20138655 (Version 2)
Quarter: 2022Q4

REPORT INFORMATION
  Report Type: Spontaneous
  Country: GB (occurrence: GB)
  Receive Date: 20211202
  Receipt Date: 20221006
  Transmission Date: 20230113
  Serious: Yes (Other)
  Sender: FDA-Public Use
  Company Number: GB-MHRA-ADR 24507975

PATIENT
  Age: 44 Year

DRUGS (8)
  1. AMLODIPINE [Suspect]
     Active Substance: AMLODIPINE BESYLATE
     Indication: Product used for unknown indication
     Dosage: UNK
     Route: 065
  2. BISOPROLOL [Suspect]
     Active Substance: BISOPROLOL
     Indication: Hypertension
     Dosage: UNK, WAS ON 10MG TO 5 MG NOW FOR THE LAST 5 DAYS
     Route: 065
     Dates: start: 2018
  3. BISOPROLOL [Suspect]
     Active Substance: BISOPROLOL
     Dosage: UNK
     Route: 065
  4. RAMIPRIL [Suspect]
     Active Substance: RAMIPRIL
     Indication: Hypertension
     Dosage: 5 MILLIGRAM, ONCE A DAY (MORNING)
     Route: 048
     Dates: start: 20210210, end: 20210211
  5. AMITRIPTYLINE [Concomitant]
     Active Substance: AMITRIPTYLINE
     Indication: Product used for unknown indication
     Dosage: 30 MILLIGRAM
     Route: 065
  6. FLUOXETINE [Concomitant]
     Active Substance: FLUOXETINE HYDROCHLORIDE
     Indication: Product used for unknown indication
     Dosage: 20 MILLIGRAM
     Route: 065
  7. OMEPRAZOLE [Concomitant]
     Active Substance: OMEPRAZOLE
     Indication: Product used for unknown indication
     Dosage: 20 MILLIGRAM
     Route: 065
  8. OLANZAPINE [Concomitant]
     Active Substance: OLANZAPINE
     Indication: Product used for unknown indication
     Dosage: UNK
     Route: 065

REACTIONS (33)
  - Syncope [Unknown]
  - Bradycardia [Unknown]
  - Blood pressure decreased [Recovered/Resolved]
  - Chest pain [Unknown]
  - Muscle twitching [Unknown]
  - Peripheral coldness [Unknown]
  - Trismus [Recovered/Resolved]
  - Drug ineffective [Unknown]
  - Drug interaction [Unknown]
  - Feeling cold [Unknown]
  - Anxiety [Unknown]
  - Depression [Unknown]
  - Chest discomfort [Unknown]
  - Nausea [Unknown]
  - Vomiting [Unknown]
  - Confusional state [Unknown]
  - Dyspnoea [Unknown]
  - Speech disorder [Unknown]
  - Haemoptysis [Recovering/Resolving]
  - Tachycardia [Unknown]
  - Axillary pain [Recovered/Resolved]
  - Brain oedema [Unknown]
  - Pulmonary oedema [Unknown]
  - Generalised oedema [Unknown]
  - Brain injury [Unknown]
  - Mental impairment [Recovering/Resolving]
  - Intelligence test abnormal [Recovering/Resolving]
  - Facial paralysis [Unknown]
  - Suicidal behaviour [Unknown]
  - Adrenal adenoma [Unknown]
  - Transient ischaemic attack [Unknown]
  - Fluid retention [Recovering/Resolving]
  - Hypertension [Unknown]
